FAERS Safety Report 6503754-3 (Version None)
Quarter: 2009Q4

REPORT INFORMATION
  Report Type: 
  Country: None (occurrence: None)
  Receive Date: 20091216
  Receipt Date: 20091216
  Transmission Date: 20100525
  Serious: No
  Sender: FDA-Public Use
  Company Number: None

PATIENT
  Age: 64 Year
  Sex: Female
  Weight: 117.9352 kg

DRUGS (1)
  1. FOSAMAX [Suspect]
     Indication: OSTEOPOROSIS
     Dosage: 70 MG 1 A WK
     Dates: start: 20091119

REACTIONS (9)
  - ARTHRALGIA [None]
  - BACK PAIN [None]
  - CHEST DISCOMFORT [None]
  - GAIT DISTURBANCE [None]
  - HEADACHE [None]
  - JOINT SPRAIN [None]
  - MUSCULOSKELETAL CHEST PAIN [None]
  - NECK PAIN [None]
  - PAIN IN EXTREMITY [None]
